FAERS Safety Report 5315229-8 (Version None)
Quarter: 2007Q2

REPORT INFORMATION
  Report Type: 
  Country: None (occurrence: None)
  Receive Date: 20070427
  Receipt Date: 20070413
  Transmission Date: 20071010
  Serious: Yes (Hospitalization, Other)
  Sender: FDA-Public Use
  Company Number: 2007RR-06952

PATIENT
  Age: 72 Year
  Sex: Female

DRUGS (9)
  1. FUROSEMIDE [Suspect]
     Indication: CARDIAC FAILURE
     Dosage: 30 MG, QD
  2. XIPAMIDE (XIPAMIDE) [Suspect]
     Indication: CARDIAC FAILURE
     Dosage: 20 MG, QD
  3. ALLOPURINOL [Concomitant]
  4. THEOPHYLLINE [Concomitant]
  5. POTASSIUM CHLORIDE [Concomitant]
  6. BROTIZOLAM [Concomitant]
  7. RISPERIDONE [Concomitant]
  8. CAFEDRINE [Concomitant]
  9. THEOADREANALINE [Concomitant]

REACTIONS (5)
  - HYPOKALAEMIA [None]
  - HYPONATRAEMIA [None]
  - RHABDOMYOLYSIS [None]
  - VENTRICULAR EXTRASYSTOLES [None]
  - VOMITING [None]
